FAERS Safety Report 5346272-0 (Version None)
Quarter: 2007Q2

REPORT INFORMATION
  Report Type: 
  Country: None (occurrence: None)
  Receive Date: 20070420
  Receipt Date: 20060707
  Transmission Date: 20071010
  Serious: Yes (Hospitalization)
  Sender: FDA-Public Use
  Company Number: 06P-163-0337654-00

PATIENT
  Age: 10 Year
  Sex: Male

DRUGS (3)
  1. DEPAKOTE [Suspect]
     Indication: ATTENTION DEFICIT/HYPERACTIVITY DISORDER
     Dosage: 500 MG Q AM AN D750 MG Q HS, ORAL
     Route: 048
  2. RISPERIDONE [Concomitant]
  3. METHYLPHENIDATE HCL [Concomitant]

REACTIONS (4)
  - CONTUSION [None]
  - MANIA [None]
  - PLATELET COUNT DECREASED [None]
  - WEIGHT DECREASED [None]
